FAERS Safety Report 5549898-4 (Version None)
Quarter: 2007Q4

REPORT INFORMATION
  Report Type: 
  Country: None (occurrence: None)
  Receive Date: 20071128
  Receipt Date: 20070206
  Transmission Date: 20080405
  Serious: Yes (Other)
  Sender: FDA-Public Use
  Company Number: 2007010378

PATIENT
  Sex: Female
  Weight: 56.7 kg

DRUGS (3)
  1. LIPITOR [Suspect]
     Indication: BLOOD CHOLESTEROL INCREASED
     Dosage: 10 MG (10 MG, 1 IN 1 D)
     Dates: start: 20030101, end: 20061201
  2. FOSAMAX [Concomitant]
  3. NIFEDIPINE [Concomitant]

REACTIONS (7)
  - ABDOMINAL PAIN UPPER [None]
  - ERUCTATION [None]
  - FATIGUE [None]
  - HEPATIC ENZYME INCREASED [None]
  - MYALGIA [None]
  - PRURITUS [None]
  - STOMACH DISCOMFORT [None]
